FAERS Safety Report 7142365-6 (Version None)
Quarter: 2010Q4

REPORT INFORMATION
  Report Type: 
  Country: None (occurrence: None)
  Receive Date: 20101207
  Receipt Date: 20101122
  Transmission Date: 20110411
  Serious: No
  Sender: FDA-Public Use
  Company Number: US-ROXANE LABORATORIES, INC.-2010-RO-01405RO

PATIENT
  Sex: Female

DRUGS (4)
  1. MORPHINE [Suspect]
     Indication: NEURALGIA
     Route: 048
     Dates: start: 19990101
  2. MORPHINE [Suspect]
     Dosage: 45 MG
     Route: 048
     Dates: start: 20101027, end: 20101027
  3. DILANTIN [Concomitant]
     Indication: CONVULSION
  4. DOXYCYCLINE [Concomitant]
     Indication: LYME DISEASE

REACTIONS (11)
  - AGITATION [None]
  - DRUG ADMINISTRATION ERROR [None]
  - DRUG INEFFECTIVE [None]
  - EAR CONGESTION [None]
  - EYE PAIN [None]
  - FATIGUE [None]
  - NASAL CONGESTION [None]
  - PAIN [None]
  - PALPITATIONS [None]
  - PHARYNGEAL OEDEMA [None]
  - URTICARIA [None]
